FAERS Safety Report 6525759-9 (Version None)
Quarter: 2010Q1

REPORT INFORMATION
  Report Type: 
  Country: None (occurrence: None)
  Receive Date: 20100104
  Receipt Date: 20091221
  Transmission Date: 20100710
  Serious: Yes (Hospitalization, Other)
  Sender: FDA-Public Use
  Company Number: US-PFIZER INC-2009259597

PATIENT
  Sex: Female

DRUGS (3)
  1. SUTENT [Suspect]
     Indication: METASTATIC RENAL CELL CARCINOMA
     Dosage: 50 MG, 1X/DAY, X 28 DAYS, Q 42 DAYS
     Route: 048
     Dates: start: 20090803, end: 20090818
  2. SUTENT [Suspect]
     Dosage: 50 MG, 1X/DAY, X 14 DAYS, Q 21 DAYS
     Dates: start: 20090825, end: 20091115
  3. DEXAMETHASONE [Suspect]
     Dosage: 3 MG, 2X/DAY

REACTIONS (7)
  - ASTHENIA [None]
  - CONVULSION [None]
  - GAIT DISTURBANCE [None]
  - HAEMOGLOBIN DECREASED [None]
  - JOINT SWELLING [None]
  - SPEECH DISORDER [None]
  - URINARY TRACT INFECTION [None]
